FAERS Safety Report 24339125 (Version 1)
Quarter: 2024Q3

REPORT INFORMATION
  Report Type: Spontaneous
  Country: RU (occurrence: RU)
  Receive Date: 20240919
  Receipt Date: 20240919
  Transmission Date: 20241016
  Serious: Yes (Life-Threatening)
  Sender: BAYER
  Company Number: None

PATIENT
  Age: 74 Year
  Sex: Male

DRUGS (1)
  1. ULTRAVIST [Suspect]
     Active Substance: IOPROMIDE
     Indication: Computerised tomogram abdomen
     Dosage: 50 ML, ONCE
     Route: 040
     Dates: start: 20240913, end: 20240913

REACTIONS (3)
  - Cyanosis central [Recovering/Resolving]
  - Bronchospasm [Recovering/Resolving]
  - Ventricular asystole [Recovering/Resolving]

NARRATIVE: CASE EVENT DATE: 20240913
